FAERS Safety Report 9921883 (Version 2)
Quarter: 2014Q1

REPORT INFORMATION
  Report Type: Report from Study
  Country: CA (occurrence: CA)
  Receive Date: 20140225
  Receipt Date: 20140324
  Transmission Date: 20141002
  Serious: Yes (Life-Threatening, Hospitalization)
  Sender: FDA-Public Use
  Company Number: CA-BRISTOL-MYERS SQUIBB COMPANY-20243119

PATIENT
  Age: 67 Year
  Sex: Male

DRUGS (10)
  1. ORENCIA [Suspect]
     Indication: RHEUMATOID ARTHRITIS
     Dosage: 1DF: 1000 UNIT: NOS
     Dates: start: 20100827, end: 20131218
  2. NOVOLIN [Concomitant]
  3. METFORMIN [Concomitant]
  4. FOLIC ACID [Concomitant]
  5. METHOTREXATE [Concomitant]
  6. DOCUSATE [Concomitant]
  7. PLAVIX [Concomitant]
  8. MICARDIS [Concomitant]
  9. LIPITOR [Concomitant]
  10. ACETAMINOPHEN [Concomitant]

REACTIONS (3)
  - Sepsis [Unknown]
  - Arrhythmia [Unknown]
  - Drug ineffective [Unknown]
